FAERS Safety Report 10470952 (Version 1)
Quarter: 2014Q3

REPORT INFORMATION
  Report Type: Spontaneous
  Country: DE (occurrence: DE)
  Receive Date: 20140923
  Receipt Date: 20140923
  Transmission Date: 20150326
  Serious: Yes (Death, Hospitalization, Other)
  Sender: FDA-Public Use
  Company Number: DE-BAXTER-2014BAX056634

PATIENT
  Age: 34 Year
  Sex: Male

DRUGS (2)
  1. ENDOXAN 1G [Suspect]
     Active Substance: CYCLOPHOSPHAMIDE
     Indication: GRANULOMATOSIS WITH POLYANGIITIS
     Route: 040
  2. ENDOXAN 1G [Suspect]
     Active Substance: CYCLOPHOSPHAMIDE
     Dosage: RESUMED 5 YEARS LATER
     Route: 040

REACTIONS (5)
  - Death [Fatal]
  - Pericardial effusion [Recovered/Resolved]
  - Infection [Unknown]
  - Atrioventricular block [Recovered/Resolved]
  - Pneumocystis jirovecii pneumonia [Unknown]
